FAERS Safety Report 4816468-2 (Version None)
Quarter: 2005Q4

REPORT INFORMATION
  Report Type: 
  Country: None (occurrence: None)
  Receive Date: 20051028
  Receipt Date: 20051012
  Transmission Date: 20060501
  Serious: Yes (Hospitalization)
  Sender: FDA-Public Use
  Company Number: 2005142127

PATIENT
  Age: 62 Year
  Sex: Female

DRUGS (3)
  1. LIPITOR [Suspect]
     Indication: HYPERCHOLESTEROLAEMIA
     Dosage: ORAL
     Route: 048
     Dates: start: 20050909, end: 20051004
  2. STARLIX [Concomitant]
  3. KETAS (IBUDILAST) [Concomitant]

REACTIONS (4)
  - DIZZINESS [None]
  - LIVER DISORDER [None]
  - MALAISE [None]
  - TRANSAMINASES INCREASED [None]
